FAERS Safety Report 21830555 (Version 1)
Quarter: 2023Q1

REPORT INFORMATION
  Report Type: Spontaneous
  Country: US (occurrence: US)
  Receive Date: 20230106
  Receipt Date: 20230106
  Transmission Date: 20230417
  Serious: Yes (Hospitalization)
  Sender: FDA-Public Use
  Company Number: US-GLAXOSMITHKLINE-US2023000300

PATIENT

DRUGS (1)
  1. ADVAIR DISKUS [Suspect]
     Active Substance: FLUTICASONE PROPIONATE\SALMETEROL XINAFOATE
     Indication: Asthma-chronic obstructive pulmonary disease overlap syndrome
     Dosage: 1 PUFF(S), BID
     Dates: start: 20211116

REACTIONS (3)
  - Back pain [Unknown]
  - Swelling [Unknown]
  - Pain [Unknown]
